FAERS Safety Report 9541846 (Version 2)
Quarter: 2013Q4

REPORT INFORMATION
  Report Type: Report from Study
  Country: AR (occurrence: AR)
  Receive Date: 20130923
  Receipt Date: 20131111
  Transmission Date: 20140711
  Serious: Yes (Other)
  Sender: FDA-Public Use
  Company Number: PHHY2013AR105463

PATIENT
  Sex: Female

DRUGS (1)
  1. DIOVAN [Suspect]
     Indication: BLOOD PRESSURE ABNORMAL
     Dosage: 1 DF, (160 MG) DAILY
     Route: 048
     Dates: start: 20130917, end: 20130919

REACTIONS (2)
  - Anal haemorrhage [Unknown]
  - Haematochezia [Not Recovered/Not Resolved]
